FAERS Safety Report 14969873 (Version 1)
Quarter: 2018Q2

REPORT INFORMATION
  Report Type: Spontaneous
  Country: US (occurrence: US)
  Receive Date: 20180604
  Receipt Date: 20180604
  Transmission Date: 20180711
  Serious: No
  Sender: FDA-Public Use
  Company Number: US-TEVA-2018-US-900301

PATIENT
  Age: 2 Year
  Sex: Female

DRUGS (2)
  1. BENADRYL [Concomitant]
     Active Substance: DIPHENHYDRAMINE HYDROCHLORIDE
  2. AMOXICILLIN. [Suspect]
     Active Substance: AMOXICILLIN
     Indication: EAR INFECTION
     Dosage: FORM STRENGTH: 250 MG/5 ML
     Route: 065
     Dates: start: 20180528

REACTIONS (1)
  - Allergic reaction to excipient [Unknown]

NARRATIVE: CASE EVENT DATE: 20180528
